FAERS Safety Report 7905568-6 (Version None)
Quarter: 2011Q4

REPORT INFORMATION
  Report Type: 
  Country: None (occurrence: None)
  Receive Date: 20111110
  Receipt Date: 20111031
  Transmission Date: 20120403
  Serious: No
  Sender: FDA-Public Use
  Company Number: US-BIOGENIDEC-2011BI041854

PATIENT
  Age: 52 Year
  Sex: Female

DRUGS (4)
  1. NUVIGIL [Concomitant]
     Dates: start: 20110301
  2. TYSABRI [Suspect]
     Indication: MULTIPLE SCLEROSIS
     Route: 042
     Dates: start: 20110111
  3. AVONEX [Concomitant]
     Indication: MULTIPLE SCLEROSIS
     Route: 030
     Dates: start: 20031006
  4. AVONEX [Concomitant]
     Route: 030

REACTIONS (2)
  - FATIGUE [None]
  - HEADACHE [None]
